FAERS Safety Report 7274637-9 (Version None)
Quarter: 2011Q1

REPORT INFORMATION
  Report Type: 
  Country: None (occurrence: None)
  Receive Date: 20110202
  Receipt Date: 20110202
  Transmission Date: 20110831
  Serious: Yes (Life-Threatening)
  Sender: FDA-Public Use
  Company Number: None

PATIENT
  Sex: Female

DRUGS (1)
  1. SPRINTEC [Suspect]

REACTIONS (3)
  - ATRIAL SEPTAL DEFECT [None]
  - ILIAC ARTERY THROMBOSIS [None]
  - CEREBROVASCULAR ACCIDENT [None]
